FAERS Safety Report 8032704-6 (Version None)
Quarter: 2011Q4

REPORT INFORMATION
  Report Type: 
  Country: None (occurrence: None)
  Receive Date: 20111202
  Receipt Date: 20101110
  Transmission Date: 20120403
  Serious: Yes (Other)
  Sender: FDA-Public Use
  Company Number: WAES 1011USA01405

PATIENT
  Age: 66 Year
  Sex: Female

DRUGS (3)
  1. ATENOLOL [Concomitant]
  2. FOSAMAX [Suspect]
     Indication: OSTEOPOROSIS
     Dosage: /WKY/PO
     Route: 048
     Dates: start: 20020801, end: 20080801
  3. ATACAND [Concomitant]

REACTIONS (1)
  - OSTEONECROSIS OF JAW [None]
